FAERS Safety Report 22944798 (Version 2)
Quarter: 2024Q1

REPORT INFORMATION
  Report Type: Spontaneous
  Country: GR (occurrence: GR)
  Receive Date: 20230914
  Receipt Date: 20240220
  Transmission Date: 20240410
  Serious: Yes (Death, Life-Threatening, Other)
  Sender: FDA-Public Use
  Company Number: None

PATIENT
  Age: 74 Year
  Sex: Female
  Weight: 70 kg

DRUGS (13)
  1. JARDIANCE [Suspect]
     Active Substance: EMPAGLIFLOZIN
     Indication: Cardiac failure
     Route: 048
     Dates: start: 20230731, end: 20230814
  2. XARELTO [Suspect]
     Active Substance: RIVAROXABAN
     Indication: Atrial fibrillation
     Dates: start: 20230731, end: 20230814
  3. XANAX 2 mg [Concomitant]
     Indication: Anxiety disorder
     Route: 048
     Dates: start: 20230731, end: 20230814
  4. Salurex 500 MG [Concomitant]
     Indication: Cardiac failure
     Route: 048
     Dates: start: 20230731, end: 20230814
  5. KERLONE [Concomitant]
     Active Substance: BETAXOLOL HYDROCHLORIDE
     Indication: Product used for unknown indication
     Dosage: HALF A TABLET TWICE DAILY
     Dates: start: 20230731, end: 20230814
  6. LIPOMIN 20 MG [Concomitant]
     Indication: Dyslipidaemia
     Dates: start: 20230731, end: 20230814
  7. penrazol [Concomitant]
     Indication: Prophylaxis against gastrointestinal ulcer
     Route: 048
     Dates: start: 20230731, end: 20230814
  8. ALDACTONE 100 mg Filmtabletten [Concomitant]
     Indication: Cardiac failure
     Route: 048
     Dates: start: 20230731, end: 20230814
  9. LIPOMIN 20 MG [Concomitant]
     Indication: Dyslipidaemia
     Dates: start: 20230731, end: 20230814
  10. penrazol [Concomitant]
     Indication: Prophylaxis against gastrointestinal ulcer
     Route: 048
     Dates: start: 20230731, end: 20230814
  11. ALDACTONE 100 mg Filmtabletten [Concomitant]
     Indication: Cardiac failure
     Route: 048
     Dates: start: 20230731, end: 20230814
  12. Salurex 500 MG [Concomitant]
     Indication: Cardiac failure
     Route: 048
     Dates: start: 20230731, end: 20230814
  13. XANAX 2 mg [Concomitant]
     Indication: Anxiety disorder
     Route: 048
     Dates: start: 20230731, end: 20230814

REACTIONS (5)
  - Vertebral artery thrombosis [Fatal]
  - Acute kidney injury [Fatal]
  - Atrial thrombosis [Fatal]
  - Drug ineffective [Fatal]
  - Cerebral ischaemia [Fatal]

NARRATIVE: CASE EVENT DATE: 20230731
